FAERS Safety Report 6879482-1 (Version None)
Quarter: 2010Q3

REPORT INFORMATION
  Report Type: 
  Country: None (occurrence: None)
  Receive Date: 20100728
  Receipt Date: 20100719
  Transmission Date: 20110219
  Serious: Yes (Life-Threatening, Hospitalization)
  Sender: FDA-Public Use
  Company Number: GXKR2010BR08012

PATIENT
  Age: 47 Year
  Sex: Female

DRUGS (7)
  1. THIAMAZOLE (NGX) [Interacting]
     Indication: BASEDOW'S DISEASE
     Dosage: 40 MG, QD
     Route: 065
  2. POLIGLUSAM [Interacting]
     Indication: OBESITY
     Dosage: 500 MG, BID
     Route: 065
  3. SENNA [Interacting]
     Indication: OBESITY
     Dosage: 100 MG, BID
     Route: 065
  4. GARCINIA CAMBOGIA [Interacting]
     Indication: OBESITY
     Dosage: 380 MG, BID
     Route: 065
  5. ALOIN [Interacting]
     Indication: OBESITY
     Dosage: 40 MG, BID
     Route: 065
  6. PASSIFLORA [Suspect]
     Indication: OBESITY
     Dosage: 350 MG, BID
     Route: 065
  7. SIBUTRAMINE [Concomitant]
     Route: 065

REACTIONS (6)
  - ABDOMINAL PAIN [None]
  - DRUG INTERACTION [None]
  - HEPATIC NECROSIS [None]
  - HEPATITIS CHOLESTATIC [None]
  - JAUNDICE [None]
  - LIVER TRANSPLANT [None]
